FAERS Safety Report 10211127 (Version 6)
Quarter: 2014Q4

REPORT INFORMATION
  Report Type: Report from Study
  Country: US (occurrence: US)
  Receive Date: 20140602
  Receipt Date: 20141126
  Transmission Date: 20150528
  Serious: Yes (Other)
  Sender: FDA-Public Use
  Company Number: US-SA-2014SA020954

PATIENT
  Age: 62 Year
  Sex: Male

DRUGS (23)
  1. AUBAGIO [Suspect]
     Active Substance: TERIFLUNOMIDE
     Indication: MULTIPLE SCLEROSIS
     Route: 048
     Dates: end: 201406
  2. TRAMADOL [Concomitant]
     Active Substance: TRAMADOL
  3. AUBAGIO [Suspect]
     Active Substance: TERIFLUNOMIDE
     Indication: MULTIPLE SCLEROSIS
     Route: 048
     Dates: start: 20140217
  4. LITHIUM CARBONATE. [Concomitant]
     Active Substance: LITHIUM CARBONATE
  5. MOBIC [Concomitant]
     Active Substance: MELOXICAM
  6. CALCIUM/VITAMIN D [Concomitant]
     Active Substance: CALCIUM\VITAMIN D
  7. CHANTIX [Concomitant]
     Active Substance: VARENICLINE TARTRATE
  8. ALL OTHER THERAPEUTIC PRODUCTS [Concomitant]
     Active Substance: UNSPECIFIED INGREDIENT
  9. PROAIR HFA [Concomitant]
     Active Substance: ALBUTEROL SULFATE
  10. LIDODERM [Concomitant]
     Active Substance: LIDOCAINE
     Dosage: PATCH
  11. AUBAGIO [Suspect]
     Active Substance: TERIFLUNOMIDE
     Indication: MULTIPLE SCLEROSIS
     Route: 048
     Dates: start: 20140214, end: 20140215
  12. METOPROLOL [Concomitant]
     Active Substance: METOPROLOL
  13. DURAGESIC [Concomitant]
     Active Substance: FENTANYL
     Dosage: PATCH
  14. AMPYRA [Concomitant]
     Active Substance: DALFAMPRIDINE
  15. LOSARTAN [Concomitant]
     Active Substance: LOSARTAN
  16. VITAMIN C [Concomitant]
     Active Substance: ASCORBIC ACID
  17. FISH OIL [Concomitant]
     Active Substance: FISH OIL
  18. MULTIVITAMINS [Concomitant]
     Active Substance: VITAMINS
  19. BACLOFEN. [Concomitant]
     Active Substance: BACLOFEN
  20. ANTIDEPRESSANTS [Concomitant]
     Active Substance: UNSPECIFIED INGREDIENT
  21. PANTOPRAZOLE [Concomitant]
     Active Substance: PANTOPRAZOLE SODIUM
  22. GLUCOSAMINE [Concomitant]
     Active Substance: GLUCOSAMINE
  23. ASPIRIN. [Concomitant]
     Active Substance: ASPIRIN

REACTIONS (15)
  - Muscular weakness [Recovered/Resolved]
  - Malaise [Unknown]
  - Musculoskeletal stiffness [Not Recovered/Not Resolved]
  - Drug dose omission [Unknown]
  - Nausea [Unknown]
  - Confusional state [Unknown]
  - Fall [Unknown]
  - Muscle spasms [Not Recovered/Not Resolved]
  - Balance disorder [Not Recovered/Not Resolved]
  - Pain in extremity [Not Recovered/Not Resolved]
  - Somnolence [Unknown]
  - Gait disturbance [Not Recovered/Not Resolved]
  - Restlessness [Unknown]
  - Memory impairment [Unknown]
  - Vomiting [Unknown]

NARRATIVE: CASE EVENT DATE: 20140216
